FAERS Safety Report 10114460 (Version 2)
Quarter: 2014Q2

REPORT INFORMATION
  Report Type: Spontaneous
  Country: US (occurrence: US)
  Receive Date: 20140426
  Receipt Date: 20140611
  Transmission Date: 20141212
  Serious: No
  Sender: FDA-Public Use
  Company Number: US-009507513-1404USA001860

PATIENT
  Age: 32 Year
  Sex: Male
  Weight: 77.98 kg

DRUGS (1)
  1. CLARITIN [Suspect]
     Indication: SEASONAL ALLERGY
     Dosage: UNK, UNKNOWN
     Route: 048
     Dates: start: 20140324, end: 20140325

REACTIONS (2)
  - Trismus [Recovered/Resolved]
  - Pain in jaw [Recovered/Resolved]
